FAERS Safety Report 10690050 (Version 2)
Quarter: 2015Q2

REPORT INFORMATION
  Report Type: Spontaneous
  Country: US (occurrence: US)
  Receive Date: 20150105
  Receipt Date: 20150427
  Transmission Date: 20150821
  Serious: No
  Sender: FDA-Public Use
  Company Number: US-JNJFOC-20141207609

PATIENT
  Age: 45 Year
  Sex: Male
  Weight: 80.74 kg

DRUGS (2)
  1. BENZTROPINE [Concomitant]
     Active Substance: BENZTROPINE
     Route: 065
  2. INVEGA SUSTENNA [Suspect]
     Active Substance: PALIPERIDONE PALMITATE
     Indication: BIPOLAR DISORDER
     Dosage: LOADING DOSE
     Route: 030
     Dates: start: 20141119, end: 20141126

REACTIONS (2)
  - Blister [Recovered/Resolved with Sequelae]
  - Product use issue [Unknown]

NARRATIVE: CASE EVENT DATE: 20141119
